FAERS Safety Report 6614096-X (Version None)
Quarter: 2010Q1

REPORT INFORMATION
  Report Type: 
  Country: None (occurrence: None)
  Receive Date: 20100304
  Receipt Date: 20100222
  Transmission Date: 20100710
  Serious: Yes (Hospitalization)
  Sender: FDA-Public Use
  Company Number: PHHY2010JP10424

PATIENT
  Age: 80 Year
  Sex: Male

DRUGS (1)
  1. GLEEVEC [Suspect]
     Indication: GASTROINTESTINAL STROMAL TUMOUR
     Dosage: 300 MG/DAY
     Route: 048

REACTIONS (3)
  - BONE NEOPLASM MALIGNANT [None]
  - NEOPLASM MALIGNANT [None]
  - SURGERY [None]
